FAERS Safety Report 6496795-6 (Version None)
Quarter: 2009Q4

REPORT INFORMATION
  Report Type: 
  Country: None (occurrence: None)
  Receive Date: 20091125
  Receipt Date: 20090401
  Transmission Date: 20100525
  Serious: Yes (Other)
  Sender: FDA-Public Use
  Company Number: 2009BH005272

PATIENT
  Sex: Male

DRUGS (20)
  1. DIANEAL [Suspect]
     Indication: PERITONEAL DIALYSIS
     Dosage: 12 L ; EVERY DAY ; IP
     Route: 033
  2. ALLEGRA [Concomitant]
  3. DARVOCET-N 100 [Concomitant]
  4. LUNESTA [Concomitant]
  5. TOPROL-XL [Concomitant]
  6. VICODIN [Concomitant]
  7. TYLENOL (CAPLET) [Concomitant]
  8. PLAVIX [Concomitant]
  9. OLMESARTAN [Concomitant]
  10. COUMADIN [Concomitant]
  11. FOLIC ACID [Concomitant]
  12. AMIODARONE [Concomitant]
  13. LANTUS [Concomitant]
  14. IMDUR [Concomitant]
  15. HYDRALAZINE [Concomitant]
  16. PREVACID [Concomitant]
  17. ZETIA [Concomitant]
  18. SYNTHROID [Concomitant]
  19. SLOW-FE [Concomitant]
  20. CALCITRIOL [Concomitant]

REACTIONS (6)
  - ABDOMINAL DISTENSION [None]
  - DIARRHOEA [None]
  - MALAISE [None]
  - MUSCLE SPASMS [None]
  - PERITONITIS BACTERIAL [None]
  - PYREXIA [None]
